FAERS Safety Report 14540205 (Version 1)
Quarter: 2018Q1

REPORT INFORMATION
  Report Type: Report from Study
  Country: GB (occurrence: GB)
  Receive Date: 20180216
  Receipt Date: 20180216
  Transmission Date: 20180509
  Serious: Yes (Hospitalization, Other)
  Sender: FDA-Public Use
  Company Number: GB-PFIZER INC-2018061205

PATIENT
  Sex: Female
  Weight: 68.5 kg

DRUGS (16)
  1. AVASTIN [Suspect]
     Active Substance: BEVACIZUMAB
     Indication: OVARIAN CANCER
     Dosage: 512 MG, EVERY 3 WEEKS (LAST DOSE PRIOR TO SAE 20/FEB/201421 DAY CYCLE)
     Route: 042
     Dates: start: 20121114
  2. DEXAMETHASONE. [Concomitant]
     Active Substance: DEXAMETHASONE
     Dosage: 20 MG, UNK (PRE CHEMOTHERAPY)
     Dates: start: 20120907, end: 20121224
  3. ONDANSETRON [Concomitant]
     Active Substance: ONDANSETRON
     Dosage: UNK
     Route: 065
     Dates: start: 201407, end: 201408
  4. RANITIDINE. [Concomitant]
     Active Substance: RANITIDINE
     Dosage: 50 MG, UNK (PRE CHEMO)
     Dates: start: 20120907, end: 20121221
  5. ONDANSETRON [Concomitant]
     Active Substance: ONDANSETRON
     Dosage: 8 MG, UNK (PRE CHEMO)
     Dates: start: 20120907, end: 20121224
  6. VENTOLIN [Concomitant]
     Active Substance: ALBUTEROL SULFATE
     Dosage: 1 DF, UNK (1 PUFF)
  7. AVASTIN [Suspect]
     Active Substance: BEVACIZUMAB
     Dosage: 525 MG, EVERY 3 WEEKS (LAST DOSE PRIOR TO EVENT 31/MAY/2013.)
     Route: 042
     Dates: start: 20121114
  8. CHLORPHENAMINE [Concomitant]
     Active Substance: CHLORPHENIRAMINE MALEATE
     Dosage: 10 MG, UNK (PRE CHEMO)
     Dates: start: 20120907, end: 20121221
  9. PACLITAXEL. [Suspect]
     Active Substance: PACLITAXEL
     Indication: OVARIAN CANCER
     Dosage: UNK
     Dates: start: 20120907
  10. CARBOPLATIN. [Suspect]
     Active Substance: CARBOPLATIN
     Indication: OVARIAN CANCER
     Dosage: UNK
     Dates: start: 20120907
  11. DEXAMETHASONE. [Concomitant]
     Active Substance: DEXAMETHASONE
     Dosage: 8 MG, UNK (POST CHEMOTHERAPY)
     Dates: start: 20120907, end: 20121221
  12. CARBOPLATIN. [Suspect]
     Active Substance: CARBOPLATIN
     Dosage: UNK
     Dates: start: 20140722, end: 20141110
  13. AVASTIN [Suspect]
     Active Substance: BEVACIZUMAB
     Dosage: 512 MG, UNK (LAST DOSE PRIOR TO SAE 20/FEB/2014)
     Route: 042
     Dates: start: 20141114
  14. METOCLOPRAMIDE. [Concomitant]
     Active Substance: METOCLOPRAMIDE
     Dosage: 10 MG, UNK
     Dates: start: 20120907, end: 20121224
  15. HYOSCINE-N-BUTYLBROMIDE [Concomitant]
     Active Substance: BUTYLSCOPOLAMINE BROMIDE
     Dosage: 10 MG, UNK
  16. PACLITAXEL. [Suspect]
     Active Substance: PACLITAXEL
     Dosage: UNK
     Dates: start: 20140722, end: 20141110

REACTIONS (5)
  - Hypertension [Recovered/Resolved]
  - Tumour pain [Recovered/Resolved]
  - Abdominal pain [Recovered/Resolved]
  - Neutrophil count decreased [Recovered/Resolved]
  - Neutrophil count decreased [Recovered/Resolved]

NARRATIVE: CASE EVENT DATE: 201211
